FAERS Safety Report 20764714 (Version 1)
Quarter: 2022Q2

REPORT INFORMATION
  Report Type: Spontaneous
  Country: US (occurrence: US)
  Receive Date: 20220428
  Receipt Date: 20220428
  Transmission Date: 20220721
  Serious: No
  Sender: FDA-Public Use
  Company Number: US-PFIZER INC-202101110601

PATIENT
  Age: 50 Year
  Sex: Female
  Weight: 67.13 kg

DRUGS (1)
  1. XANAX [Suspect]
     Active Substance: ALPRAZOLAM
     Indication: Anxiety
     Dosage: 1 MG, 1X/DAY, BY MOUTH
     Route: 048

REACTIONS (2)
  - Stress [Unknown]
  - Drug ineffective [Unknown]
